FAERS Safety Report 8339756-4 (Version None)
Quarter: 2012Q2

REPORT INFORMATION
  Report Type: 
  Country: None (occurrence: None)
  Receive Date: 20120507
  Receipt Date: 20120427
  Transmission Date: 20120825
  Serious: Yes (Other)
  Sender: FDA-Public Use
  Company Number: US-BAYER-2012-038483

PATIENT

DRUGS (1)
  1. ULTRAVIST 150 [Suspect]
     Indication: ANGIOGRAM
     Dosage: 120 MG, ONCE
     Dates: start: 20120404, end: 20120404

REACTIONS (3)
  - PHARYNGEAL OEDEMA [None]
  - NAUSEA [None]
  - DYSPNOEA [None]
